FAERS Safety Report 8875950 (Version 1)
Quarter: 2012Q4

REPORT INFORMATION
  Report Type: 
  Country: IT (occurrence: IT)
  Receive Date: 20121030
  Receipt Date: 20121030
  Transmission Date: 20130627
  Serious: Yes (Hospitalization)
  Sender: FDA-Public Use
  Company Number: PHHY2012IT096950

PATIENT
  Age: 17 Year
  Sex: Male

DRUGS (2)
  1. CITALOPRAM [Suspect]
     Dosage: 20 mg, daily
     Route: 048
     Dates: start: 20110918, end: 20120917
  2. QUETIAPINE [Concomitant]

REACTIONS (1)
  - Activation syndrome [Recovering/Resolving]
